FAERS Safety Report 11898328 (Version 1)
Quarter: 2016Q1

REPORT INFORMATION
  Report Type: Spontaneous
  Country: DE (occurrence: None)
  Receive Date: 20160107
  Receipt Date: 20160107
  Transmission Date: 20160526
  Serious: Yes (Hospitalization)
  Sender: FDA-Public Use
  Company Number: None

PATIENT
  Sex: Male

DRUGS (9)
  1. METRONIDAZOL [Concomitant]
     Active Substance: METRONIDAZOLE
  2. PANDOPRAZOL [Concomitant]
  3. SOFOSBUVIR 400 MG [Suspect]
     Active Substance: SOFOSBUVIR
  4. SPIRONOLACTONE. [Concomitant]
     Active Substance: SPIRONOLACTONE
  5. RIBAVIRIN. [Concomitant]
     Active Substance: RIBAVIRIN
  6. RIBAVIRIN 200-400 MG [Suspect]
     Active Substance: RIBAVIRIN
     Indication: HEPATITIS C
     Dosage: 200-400 MG
     Route: 048
     Dates: start: 20150720, end: 20160104
  7. TORASEMID [Concomitant]
     Active Substance: TORSEMIDE
  8. DACLATASVIR 60 MG [Suspect]
     Active Substance: DACLATASVIR
     Indication: HEPATITIS C
     Route: 048
     Dates: start: 20150720, end: 20160104
  9. AMOXICILLIN. [Concomitant]
     Active Substance: AMOXICILLIN

REACTIONS (4)
  - Diarrhoea [None]
  - Musculoskeletal stiffness [None]
  - Pyrexia [None]
  - Urinary tract infection [None]

NARRATIVE: CASE EVENT DATE: 20151013
